FAERS Safety Report 19722236 (Version 2)
Quarter: 2021Q4

REPORT INFORMATION
  Report Type: Spontaneous
  Country: CA (occurrence: CA)
  Receive Date: 20210819
  Receipt Date: 20211004
  Transmission Date: 20220303
  Serious: Yes (Life-Threatening, Other)
  Sender: FDA-Public Use
  Company Number: CA-MYLANLABS-2021M1052079

PATIENT
  Sex: Male

DRUGS (3)
  1. EPINEPHRINE [Suspect]
     Active Substance: EPINEPHRINE
     Indication: Arthropod sting
     Dosage: FIRST DOSE
  2. EPINEPHRINE [Suspect]
     Active Substance: EPINEPHRINE
     Dosage: SECOND DOSE
  3. EPINEPHRINE [Suspect]
     Active Substance: EPINEPHRINE
     Dosage: THIRD DOSE

REACTIONS (1)
  - Drug ineffective [Unknown]
